FAERS Safety Report 23046995 (Version 3)
Quarter: 2023Q4

REPORT INFORMATION
  Report Type: Spontaneous
  Country: JP (occurrence: JP)
  Receive Date: 20231009
  Receipt Date: 20231107
  Transmission Date: 20240110
  Serious: Yes (Other)
  Sender: FDA-Public Use
  Company Number: JP-MSD-2309JPN000534J

PATIENT
  Age: 62 Year
  Sex: Male

DRUGS (5)
  1. LAGEVRIO [Suspect]
     Active Substance: MOLNUPIRAVIR
     Indication: COVID-19 treatment
     Dosage: 800 MILLIGRAM, ONCE, AFTER DINNER
     Route: 048
     Dates: start: 20230818, end: 20230818
  2. LAGEVRIO [Suspect]
     Active Substance: MOLNUPIRAVIR
     Dosage: 800 MILLIGRAM, BID
     Route: 048
     Dates: start: 20230819, end: 20230819
  3. PROBENECID [Suspect]
     Active Substance: PROBENECID
     Indication: Hyperuricaemia
     Dosage: 500 MILLIGRAM, TID
     Route: 048
     Dates: start: 20210401, end: 20230818
  4. DOTINURAD [Concomitant]
     Active Substance: DOTINURAD
     Indication: Hyperuricaemia
     Dosage: 2 MILLIGRAM, QD
     Route: 048
     Dates: start: 20230818, end: 20230819
  5. LOXOPROFEN SODIUM DIHYDRATE [Concomitant]
     Active Substance: LOXOPROFEN SODIUM DIHYDRATE
     Indication: Pyrexia
     Dosage: 60 MILLIGRAM, PRN
     Route: 048
     Dates: start: 20230818, end: 20230819

REACTIONS (3)
  - Choking [Recovered/Resolved]
  - Vertigo [Recovered/Resolved]
  - Vomiting [Recovered/Resolved]

NARRATIVE: CASE EVENT DATE: 20230819
